FAERS Safety Report 22645717 (Version 1)
Quarter: 2023Q2

REPORT INFORMATION
  Report Type: Spontaneous
  Country: FR (occurrence: FR)
  Receive Date: 20230627
  Receipt Date: 20230627
  Transmission Date: 20230722
  Serious: Yes (Hospitalization, Other)
  Sender: FDA-Public Use
  Company Number: FR-Accord-362399

PATIENT
  Age: 71 Year
  Sex: Male
  Weight: 70 kg

DRUGS (4)
  1. PACLITAXEL [Suspect]
     Active Substance: PACLITAXEL
     Indication: Anal cancer
     Dosage: 80 MG/M2, CYCLIC (DAYS 1, 8, AND 15 OF EACH 28-DAY CYCLE)
     Route: 042
     Dates: start: 20211216, end: 20220131
  2. PACLITAXEL [Suspect]
     Active Substance: PACLITAXEL
     Indication: Anal squamous cell carcinoma
  3. CARBOPLATIN [Suspect]
     Active Substance: CARBOPLATIN
     Indication: Anal cancer
     Dosage: UNK, CYCLIC (AUC 5, DAY 1 OF EACH 28-DAY CYCLE)
     Route: 042
     Dates: start: 20211216, end: 20220208
  4. CARBOPLATIN [Suspect]
     Active Substance: CARBOPLATIN
     Indication: Anal squamous cell carcinoma

REACTIONS (5)
  - Bacterial pyelonephritis [Recovered/Resolved]
  - Proteus infection [Recovered/Resolved]
  - Urethral fistula [Recovered/Resolved]
  - Ureteric fistula [Recovered/Resolved]
  - Off label use [Unknown]

NARRATIVE: CASE EVENT DATE: 20211216
